FAERS Safety Report 6446995-6 (Version None)
Quarter: 2009Q4

REPORT INFORMATION
  Report Type: 
  Country: None (occurrence: None)
  Receive Date: 20091110
  Receipt Date: 20090716
  Transmission Date: 20100525
  Serious: No
  Sender: FDA-Public Use
  Company Number: 1000007546

PATIENT
  Age: 52 Year
  Sex: Female

DRUGS (1)
  1. SAVELLA [Suspect]
     Indication: FIBROMYALGIA
     Dosage: 12. 5 MG (12.5 MG, 1 IN 1 D), ORAL
     Route: 048
     Dates: start: 20090715, end: 20090715

REACTIONS (1)
  - VISION BLURRED [None]
